FAERS Safety Report 16640426 (Version 2)
Quarter: 2019Q3

REPORT INFORMATION
  Report Type: Spontaneous
  Country: AR (occurrence: AR)
  Receive Date: 20190728
  Receipt Date: 20190924
  Transmission Date: 20191004
  Serious: Yes (Hospitalization, Other)
  Sender: FDA-Public Use
  Company Number: AR-AMGEN-ARGSP2019120032

PATIENT
  Age: 62 Year
  Sex: Male

DRUGS (1)
  1. ENBREL [Suspect]
     Active Substance: ETANERCEPT
     Indication: PSORIASIS
     Dosage: 50 MG, WEEKLY
     Route: 065
     Dates: start: 20180825, end: 201902

REACTIONS (3)
  - Duodenal ulcer haemorrhage [Unknown]
  - Drug ineffective [Recovering/Resolving]
  - Hepatitis [Unknown]

NARRATIVE: CASE EVENT DATE: 2019
